FAERS Safety Report 10065089 (Version 1)
Quarter: 2014Q1

REPORT INFORMATION
  Report Type: Spontaneous
  Country: US (occurrence: None)
  Receive Date: 20140328
  Receipt Date: 20140328
  Transmission Date: 20141002
  Serious: No
  Sender: FDA-Public Use
  Company Number: CABO-13003818

PATIENT
  Age: 13 Year
  Sex: Female
  Weight: 56.8 kg

DRUGS (4)
  1. COMETRIQ [Suspect]
     Indication: THYROID CANCER
     Route: 048
     Dates: start: 20130523, end: 20131212
  2. CALCITRIOL [Concomitant]
  3. CALCIUM CARBONATE [Concomitant]
  4. SYNTHROID (LEVOTHRYOXINE SODIUM) [Concomitant]

REACTIONS (2)
  - Malaise [None]
  - Abdominal pain [None]
